FAERS Safety Report 19042980 (Version 1)
Quarter: 2021Q1

REPORT INFORMATION
  Report Type: Spontaneous
  Country: US (occurrence: US)
  Receive Date: 20210322
  Receipt Date: 20210322
  Transmission Date: 20210420
  Serious: Yes (Hospitalization)
  Sender: FDA-Public Use
  Company Number: None

PATIENT
  Age: 57 Year
  Sex: Female

DRUGS (6)
  1. TIZANIDINE. [Concomitant]
     Active Substance: TIZANIDINE
  2. HUMIRA [Suspect]
     Active Substance: ADALIMUMAB
     Indication: RHEUMATOID ARTHRITIS
     Route: 058
     Dates: start: 20191108
  3. METOPROL TAR [Concomitant]
  4. LYRICA [Concomitant]
     Active Substance: PREGABALIN
  5. NORVASC [Concomitant]
     Active Substance: AMLODIPINE BESYLATE
  6. LEVOTHYROXIN [Concomitant]
     Active Substance: LEVOTHYROXINE

REACTIONS (10)
  - Peptic ulcer [None]
  - Therapy interrupted [None]
  - Arthritis [None]
  - Feeling abnormal [None]
  - Joint swelling [None]
  - COVID-19 [None]
  - Arthralgia [None]
  - Headache [None]
  - Peripheral swelling [None]
  - COVID-19 pneumonia [None]

NARRATIVE: CASE EVENT DATE: 20201215
